FAERS Safety Report 11803649 (Version 2)
Quarter: 2016Q1

REPORT INFORMATION
  Report Type: Report from Study
  Country: US (occurrence: US)
  Receive Date: 20151204
  Receipt Date: 20160330
  Transmission Date: 20160525
  Serious: Yes (Hospitalization)
  Sender: FDA-Public Use
  Company Number: US-BRISTOL-MYERS SQUIBB COMPANY-BMS-2015-081545

PATIENT
  Age: 57 Year
  Sex: Male

DRUGS (3)
  1. IPILIMUMAB [Suspect]
     Active Substance: IPILIMUMAB
     Indication: PROSTATE CANCER
     Dosage: 3 MG/KG, Q3WK
     Route: 065
     Dates: start: 20150921, end: 20151012
  2. EXTERNAL-DEGARELIX [Suspect]
     Active Substance: DEGARELIX
     Indication: PROSTATE CANCER
     Dosage: 240 MG, Q4WK
     Route: 065
     Dates: start: 20150921
  3. EXTERNAL-DEGARELIX [Suspect]
     Active Substance: DEGARELIX
     Dosage: 80 MG, UNK
     Route: 065
     Dates: start: 20150921

REACTIONS (5)
  - Back pain [Not Recovered/Not Resolved]
  - Metastases to spine [None]
  - Condition aggravated [None]
  - Fall [None]
  - Muscular weakness [Recovered/Resolved]

NARRATIVE: CASE EVENT DATE: 20151118
